FAERS Safety Report 9538764 (Version 1)
Quarter: 2013Q3

REPORT INFORMATION
  Report Type: Spontaneous
  Country: US (occurrence: None)
  Receive Date: 20130917
  Receipt Date: 20130917
  Transmission Date: 20140515
  Serious: Yes (Hospitalization)
  Sender: FDA-Public Use
  Company Number: DSU-2013-04544

PATIENT
  Age: 87 Year
  Sex: Female
  Weight: 45.36 kg

DRUGS (2)
  1. BENICAR (OLMESARTAN MEDOXOMIL) (20 MILLIGRAM, TABLET) (OLMESARTAN MEDOXOMIL) [Suspect]
     Indication: HYPERTENSION
     Dosage: 20 MG (20 MG, QD), PER ORAL
     Route: 048
     Dates: start: 2012
  2. VERAPAMIL (VERAPAMIL)  (VERAPAMIL) [Concomitant]

REACTIONS (4)
  - Hypertension [None]
  - Dizziness [None]
  - Vertigo [None]
  - Gait disturbance [None]
